FAERS Safety Report 23745147 (Version 4)
Quarter: 2025Q3

REPORT INFORMATION
  Report Type: Report from Study
  Country: EU (occurrence: EU)
  Receive Date: 20240416
  Receipt Date: 20250828
  Transmission Date: 20251021
  Serious: Yes (Hospitalization, Other)
  Sender: JOHNSON AND JOHNSON
  Company Number: EU-JNJFOC-20231249761

PATIENT
  Age: 85 Year
  Sex: Male
  Weight: 72 kg

DRUGS (10)
  1. DARATUMUMAB\HYALURONIDASE-FIHJ [Suspect]
     Active Substance: DARATUMUMAB\HYALURONIDASE-FIHJ
     Indication: Plasma cell myeloma
     Route: 058
     Dates: start: 20231208, end: 20231208
  2. DARATUMUMAB\HYALURONIDASE-FIHJ [Suspect]
     Active Substance: DARATUMUMAB\HYALURONIDASE-FIHJ
     Route: 058
     Dates: start: 20231222, end: 20231222
  3. DARATUMUMAB\HYALURONIDASE-FIHJ [Suspect]
     Active Substance: DARATUMUMAB\HYALURONIDASE-FIHJ
     Dosage: 15ML
     Route: 058
     Dates: start: 20231201, end: 20231201
  4. LENALIDOMIDE [Suspect]
     Active Substance: LENALIDOMIDE
     Indication: Plasma cell myeloma
     Route: 065
     Dates: start: 20231201, end: 20231212
  5. PERINDOPRIL [Concomitant]
     Active Substance: PERINDOPRIL
     Indication: Angina pectoris
     Route: 048
     Dates: start: 20181105
  6. BISOPROLOL [Concomitant]
     Active Substance: BISOPROLOL
     Indication: Angina pectoris
     Route: 048
     Dates: start: 20231006
  7. FENTANYL [Concomitant]
     Active Substance: FENTANYL
     Indication: Pain
     Dates: start: 20231130
  8. FENTANYL [Concomitant]
     Active Substance: FENTANYL
     Dates: start: 20231129, end: 20231130
  9. FENTANYL [Concomitant]
     Active Substance: FENTANYL
     Route: 048
     Dates: start: 20231129, end: 20231130
  10. FENTANYL [Concomitant]
     Active Substance: FENTANYL
     Route: 048
     Dates: start: 20231130

REACTIONS (3)
  - Pyrexia [Recovered/Resolved]
  - COVID-19 [Recovered/Resolved]
  - Neutropenia [Recovered/Resolved]

NARRATIVE: CASE EVENT DATE: 20231201
